FAERS Safety Report 5578926-5 (Version None)
Quarter: 2008Q1

REPORT INFORMATION
  Report Type: 
  Country: None (occurrence: None)
  Receive Date: 20080102
  Receipt Date: 20071218
  Transmission Date: 20080703
  Serious: Yes (Death, Life-Threatening, Hospitalization)
  Sender: FDA-Public Use
  Company Number: SI-ELI_LILLY_AND_COMPANY-SI200606000603

PATIENT
  Age: 67 Year

DRUGS (14)
  1. LISPRO [Suspect]
     Dates: start: 20060327, end: 20060407
  2. CIPROFLOXACIN HCL [Concomitant]
     Dosage: 200 MG, DAILY (1/D)
     Route: 042
  3. HEPARIN [Concomitant]
  4. INSULIN [Concomitant]
  5. CHOLESTEROL- AND TRIGLYCERIDE REDUCERS [Concomitant]
  6. ACETYLSALICYLIC ACID SRT [Concomitant]
  7. NITROGLYCERIN [Concomitant]
  8. AMLODIPINE [Concomitant]
  9. PENTOXIFYLLINE [Concomitant]
  10. CALCIUM CARBONATE [Concomitant]
  11. SODIUM POLYSTYRENE SULFONATE [Concomitant]
  12. ORBENIN CAP [Concomitant]
     Dosage: 1000 MG, OTHER
     Route: 042
  13. MORPHINE [Concomitant]
  14. LASIX [Concomitant]

REACTIONS (2)
  - DIABETIC NEPHROPATHY [None]
  - PULMONARY OEDEMA [None]
